FAERS Safety Report 5848549-9 (Version None)
Quarter: 2008Q3

REPORT INFORMATION
  Report Type: 
  Country: None (occurrence: None)
  Receive Date: 20080815
  Receipt Date: 20080815
  Transmission Date: 20090109
  Serious: Yes (Death)
  Sender: FDA-Public Use
  Company Number: None

PATIENT
  Age: 38 Year
  Sex: Female
  Weight: 41.5 kg

DRUGS (3)
  1. COMBIVIR [Suspect]
     Indication: HIV INFECTION
     Dosage: 1 TABLET BD PO
     Route: 048
     Dates: start: 20080424, end: 20080722
  2. SUSTIVA [Suspect]
     Indication: HIV INFECTION
     Dosage: 600 MG OD PO
     Route: 048
     Dates: start: 20080424, end: 20080722
  3. SEPTRIN [Concomitant]

REACTIONS (8)
  - DIARRHOEA [None]
  - FATIGUE [None]
  - GASTRITIS [None]
  - HEADACHE [None]
  - HEPATOMEGALY [None]
  - MALAISE [None]
  - PANCREATITIS [None]
  - RHINITIS [None]
